FAERS Safety Report 19793716 (Version 1)
Quarter: 2021Q3

REPORT INFORMATION
  Report Type: Spontaneous
  Country: CA (occurrence: CA)
  Receive Date: 20210906
  Receipt Date: 20210906
  Transmission Date: 20211014
  Serious: Yes (Life-Threatening, Hospitalization, Other)
  Sender: FDA-Public Use
  Company Number: CA-TEVA-2021-CA-1948224

PATIENT
  Age: 3 Decade
  Sex: Male

DRUGS (10)
  1. ZIPRASIDONE. [Suspect]
     Active Substance: ZIPRASIDONE
     Indication: ABNORMAL BEHAVIOUR
     Route: 048
  2. ZUCLOPENTHIXOLACETATE [Suspect]
     Active Substance: ZUCLOPENTHIXOL ACETATE
     Indication: ABNORMAL BEHAVIOUR
  3. ARIPIPRAZOLE. [Suspect]
     Active Substance: ARIPIPRAZOLE
     Indication: ABNORMAL BEHAVIOUR
     Route: 065
  4. CLONAZEPAM. [Suspect]
     Active Substance: CLONAZEPAM
     Indication: PRODUCT USED FOR UNKNOWN INDICATION
     Route: 048
  5. ZUCLOPENTHIXOLACETATE [Suspect]
     Active Substance: ZUCLOPENTHIXOL ACETATE
  6. ZIPRASIDONE. [Suspect]
     Active Substance: ZIPRASIDONE
     Indication: AGGRESSION
     Route: 065
  7. CLONAZEPAM. [Suspect]
     Active Substance: CLONAZEPAM
     Indication: AGGRESSION
     Route: 065
  8. CLONAZEPAM. [Suspect]
     Active Substance: CLONAZEPAM
     Indication: ABNORMAL BEHAVIOUR
     Route: 065
  9. ZUCLOPENTHIXOLACETATE [Suspect]
     Active Substance: ZUCLOPENTHIXOL ACETATE
     Indication: AGGRESSION
     Route: 030
  10. ARIPIPRAZOLE. [Suspect]
     Active Substance: ARIPIPRAZOLE
     Indication: AGGRESSION
     Route: 048

REACTIONS (13)
  - Rhabdomyolysis [Recovered/Resolved]
  - Acute kidney injury [Recovered/Resolved]
  - Neuroleptic malignant syndrome [Recovered/Resolved]
  - Posture abnormal [Recovered/Resolved]
  - Catatonia [Recovered/Resolved]
  - Suicidal ideation [Recovered/Resolved]
  - Tachycardia [Recovered/Resolved]
  - Condition aggravated [Recovered/Resolved]
  - Delusion [Recovered/Resolved]
  - Irritability [Recovered/Resolved]
  - Abnormal behaviour [Recovered/Resolved]
  - Treatment noncompliance [Recovered/Resolved]
  - Anger [Recovered/Resolved]
